FAERS Safety Report 23152642 (Version 6)
Quarter: 2024Q4

REPORT INFORMATION
  Report Type: Report from Study
  Country: CA (occurrence: CA)
  Receive Date: 20231107
  Receipt Date: 20241008
  Transmission Date: 20250114
  Serious: Yes (Hospitalization)
  Sender: JOHNSON AND JOHNSON
  Company Number: CA-JNJFOC-20230814288

PATIENT
  Age: 14 Year
  Sex: Male
  Weight: 53 kg

DRUGS (5)
  1. REMICADE [Suspect]
     Active Substance: INFLIXIMAB
     Indication: Crohn^s disease
     Dosage: REMICADE 5.62 MG/KG FOR CROHN^S DISEASE AT WEEK 6?DOSE ON 26-AUG-2023
     Route: 042
     Dates: start: 20230724, end: 2023
  2. REMICADE [Suspect]
     Active Substance: INFLIXIMAB
     Route: 042
     Dates: start: 20231101
  3. REMICADE [Suspect]
     Active Substance: INFLIXIMAB
     Route: 042
  4. REMICADE [Suspect]
     Active Substance: INFLIXIMAB
     Route: 041
  5. PREDNISONE [Concomitant]
     Active Substance: PREDNISONE
     Indication: Product used for unknown indication
     Dosage: TAPERING OFF PREDNISONE
     Route: 048

REACTIONS (6)
  - Hospitalisation [Unknown]
  - Malaise [Unknown]
  - Abdominal pain [Not Recovered/Not Resolved]
  - Fatigue [Unknown]
  - Inappropriate schedule of product administration [Unknown]
  - Off label use [Unknown]

NARRATIVE: CASE EVENT DATE: 20230101
